FAERS Safety Report 16375821 (Version 1)
Quarter: 2019Q2

REPORT INFORMATION
  Report Type: Report from Study
  Country: None (occurrence: BR)
  Receive Date: 20190531
  Receipt Date: 20190531
  Transmission Date: 20190711
  Serious: Yes (Other)
  Sender: FDA-Public Use
  Company Number: BR-ABBVIE-19K-020-2801560-00

PATIENT
  Sex: Female
  Weight: 75 kg

DRUGS (1)
  1. HUMIRA [Suspect]
     Active Substance: ADALIMUMAB
     Indication: RHEUMATOID ARTHRITIS
     Route: 058
     Dates: start: 20181011, end: 20190413

REACTIONS (5)
  - Rheumatoid arthritis [Unknown]
  - Gait inability [Unknown]
  - Peripheral swelling [Unknown]
  - Loss of personal independence in daily activities [Unknown]
  - Pain in extremity [Unknown]

NARRATIVE: CASE EVENT DATE: 2019
